FAERS Safety Report 9847623 (Version 2)
Quarter: 2014Q1

REPORT INFORMATION
  Report Type: Spontaneous
  Country: CA (occurrence: CA)
  Receive Date: 20140128
  Receipt Date: 20140205
  Transmission Date: 20141002
  Serious: Yes (Death)
  Sender: FDA-Public Use
  Company Number: CA-BEH-2014040318

PATIENT
  Sex: Male

DRUGS (2)
  1. BERIPLEX [Suspect]
     Indication: PROCEDURAL HAEMORRHAGE
  2. HELIXATE [Suspect]
     Indication: HAEMOPHILIA

REACTIONS (1)
  - Drug ineffective [Fatal]
